FAERS Safety Report 23593248 (Version 5)
Quarter: 2024Q2

REPORT INFORMATION
  Report Type: Spontaneous
  Country: US (occurrence: US)
  Receive Date: 20240304
  Receipt Date: 20240617
  Transmission Date: 20240716
  Serious: No
  Sender: FDA-Public Use
  Company Number: US-Calliditas-2024CAL00297

PATIENT
  Age: 53 Year
  Sex: Male
  Weight: 104.3 kg

DRUGS (1)
  1. TARPEYO [Suspect]
     Active Substance: BUDESONIDE
     Indication: IgA nephropathy
     Dosage: 16MG (4MG CAPSULES) ONCE DAILY
     Route: 048
     Dates: start: 20240205

REACTIONS (19)
  - Night sweats [Not Recovered/Not Resolved]
  - Feeling cold [Recovering/Resolving]
  - Fatigue [Recovering/Resolving]
  - Peripheral swelling [Unknown]
  - Swelling face [Unknown]
  - Productive cough [Unknown]
  - Therapeutic response unexpected [Unknown]
  - Abdominal distension [Unknown]
  - Abdominal pain [Recovering/Resolving]
  - Oropharyngeal pain [Unknown]
  - Hypertension [Not Recovered/Not Resolved]
  - Accident at work [Unknown]
  - Back injury [Unknown]
  - Joint injury [Unknown]
  - Dry skin [Unknown]
  - Skin fissures [Unknown]
  - Increased tendency to bruise [Unknown]
  - Arthralgia [Unknown]
  - Back pain [Unknown]
